FAERS Safety Report 7608943-2 (Version None)
Quarter: 2011Q3

REPORT INFORMATION
  Report Type: 
  Country: None (occurrence: None)
  Receive Date: 20110714
  Receipt Date: 20110708
  Transmission Date: 20111222
  Serious: Yes (Other)
  Sender: FDA-Public Use
  Company Number: CA-GLAXOSMITHKLINE-A0936392A

PATIENT
  Age: 55 Year
  Sex: Female

DRUGS (6)
  1. INSULIN RAPID [Concomitant]
     Route: 065
  2. OMEPRAZOLE [Concomitant]
     Route: 065
  3. AVANDIA [Suspect]
     Indication: PRODUCT USED FOR UNKNOWN INDICATION
     Dosage: 1TAB PER DAY
     Route: 048
  4. COZAAR [Concomitant]
     Route: 065
  5. FLUTICASONE PROPIONATE [Concomitant]
     Route: 065
  6. FUROSEMIDE [Concomitant]
     Route: 065

REACTIONS (2)
  - LIPOMA [None]
  - PAIN [None]
